FAERS Safety Report 5298294-6 (Version None)
Quarter: 2007Q2

REPORT INFORMATION
  Report Type: 
  Country: None (occurrence: None)
  Receive Date: 20070416
  Receipt Date: 20070405
  Transmission Date: 20071010
  Serious: Yes (Other)
  Sender: FDA-Public Use
  Company Number: US-PFIZER INC-2007028690

PATIENT
  Sex: Male
  Weight: 99.8 kg

DRUGS (11)
  1. CHANTIX [Suspect]
     Indication: SMOKING CESSATION THERAPY
  2. OXYCODONE HCL [Concomitant]
  3. METHADONE HCL [Concomitant]
  4. KLONOPIN [Concomitant]
  5. ALBUTEROL [Concomitant]
  6. SPIRIVA [Concomitant]
  7. ADVAIR DISKUS 100/50 [Concomitant]
  8. TUSSIONEX ^FISONS^ [Concomitant]
  9. TRAZODONE HCL [Concomitant]
  10. AMBIEN [Concomitant]
  11. OXYGEN [Concomitant]

REACTIONS (4)
  - COORDINATION ABNORMAL [None]
  - GRIP STRENGTH DECREASED [None]
  - HEADACHE [None]
  - MOVEMENT DISORDER [None]
